FAERS Safety Report 6998649-5 (Version None)
Quarter: 2010Q3

REPORT INFORMATION
  Report Type: 
  Country: None (occurrence: None)
  Receive Date: 20100920
  Receipt Date: 20070523
  Transmission Date: 20110219
  Serious: Yes (Other)
  Sender: FDA-Public Use
  Company Number: US-ASTRAZENECA-2006UW26518

PATIENT
  Age: 11655 Day
  Sex: Male
  Weight: 90.7 kg

DRUGS (10)
  1. SEROQUEL [Suspect]
     Indication: HALLUCINATION, AUDITORY
     Dosage: 100 MG-1000 MG
     Route: 048
     Dates: start: 20011219, end: 20040101
  2. HALDOL [Concomitant]
  3. THORAZINE [Concomitant]
  4. MARIJUANA [Concomitant]
  5. DOXEPIN HCL [Concomitant]
     Dates: start: 20011108
  6. SERZONE [Concomitant]
     Dates: start: 20011119
  7. CELEXA [Concomitant]
     Dosage: 20MG-40 MG
     Dates: start: 20011231
  8. TRAZODONE HCL [Concomitant]
     Dates: start: 20040707
  9. COGENTIN [Concomitant]
  10. VISTARIL [Concomitant]
     Indication: ANXIETY
     Dosage: 50 MG-100 MG
     Route: 048
     Dates: start: 20030113

REACTIONS (6)
  - BLOOD CHOLESTEROL INCREASED [None]
  - DIABETES MELLITUS [None]
  - EXTRAPYRAMIDAL DISORDER [None]
  - HYPERCHOLESTEROLAEMIA [None]
  - OVERWEIGHT [None]
  - TYPE 2 DIABETES MELLITUS [None]
